FAERS Safety Report 20691159 (Version 1)
Quarter: 2022Q2

REPORT INFORMATION
  Report Type: Spontaneous
  Country: US (occurrence: US)
  Receive Date: 20220408
  Receipt Date: 20220408
  Transmission Date: 20220721
  Serious: No
  Sender: FDA-Public Use
  Company Number: US-INTRA-CELLULAR THERAPIES, INC.-2022ICT00067

PATIENT
  Age: 51 Year
  Sex: Female

DRUGS (3)
  1. CAPLYTA [Suspect]
     Active Substance: LUMATEPERONE
     Indication: Schizoaffective disorder
     Dosage: UNK
  2. LITHIUM [Concomitant]
     Active Substance: LITHIUM
  3. PROPRANOLOL [Concomitant]
     Active Substance: PROPRANOLOL HYDROCHLORIDE

REACTIONS (7)
  - Burning sensation [Recovered/Resolved]
  - Skin burning sensation [Recovered/Resolved]
  - Insomnia [Unknown]
  - Myalgia [Unknown]
  - Headache [Unknown]
  - Off label use [Unknown]
  - Discomfort [Unknown]
